FAERS Safety Report 13158754 (Version 1)
Quarter: 2017Q1

REPORT INFORMATION
  Report Type: Spontaneous
  Country: US (occurrence: US)
  Receive Date: 20170127
  Receipt Date: 20170127
  Transmission Date: 20170428
  Serious: Yes (Other)
  Sender: FDA-Public Use
  Company Number: US-BAYER-2017-011216

PATIENT
  Age: 17 Year
  Sex: Female
  Weight: 94.79 kg

DRUGS (1)
  1. SKYLA [Suspect]
     Active Substance: LEVONORGESTREL
     Dosage: 14 MCG/24HR, CONT
     Route: 015
     Dates: start: 20160824, end: 20161129

REACTIONS (3)
  - Uterine perforation [Recovered/Resolved]
  - Device dislocation [Recovered/Resolved]
  - Abdominal pain [Recovered/Resolved]

NARRATIVE: CASE EVENT DATE: 20160927
